FAERS Safety Report 16196543 (Version 1)
Quarter: 2019Q2

REPORT INFORMATION
  Report Type: Spontaneous
  Country: US (occurrence: US)
  Receive Date: 20190412
  Receipt Date: 20190412
  Transmission Date: 20190711
  Serious: Yes (Other)
  Sender: FDA-Public Use
  Company Number: None

PATIENT
  Age: 46 Year
  Sex: Female
  Weight: 95 kg

DRUGS (13)
  1. AFINITOR [Suspect]
     Active Substance: EVEROLIMUS
     Indication: BREAST CANCER
     Route: 048
     Dates: start: 20190116
  2. MIRTAZAPINE. [Concomitant]
     Active Substance: MIRTAZAPINE
  3. DRONABINOL. [Concomitant]
     Active Substance: DRONABINOL
  4. PRAZOSIN. [Concomitant]
     Active Substance: PRAZOSIN
  5. AUGMENTIN [Concomitant]
     Active Substance: AMOXICILLIN\CLAVULANATE POTASSIUM
  6. EXEMESTANE. [Concomitant]
     Active Substance: EXEMESTANE
  7. OMEPRAZOLE. [Concomitant]
     Active Substance: OMEPRAZOLE
  8. OXYCODONE [Concomitant]
     Active Substance: OXYCODONE
  9. CALCIUM [Concomitant]
     Active Substance: CALCIUM
  10. DEXAMETHASONE. [Concomitant]
     Active Substance: DEXAMETHASONE
  11. LORAZEPAM. [Concomitant]
     Active Substance: LORAZEPAM
  12. BUPROPION. [Concomitant]
     Active Substance: BUPROPION
  13. VITAMIN D NOS [Concomitant]
     Active Substance: VITAMIN D NOS

REACTIONS (1)
  - Diarrhoea [None]

NARRATIVE: CASE EVENT DATE: 20190405
